FAERS Safety Report 10334900 (Version 6)
Quarter: 2015Q1

REPORT INFORMATION
  Report Type: Spontaneous
  Country: US (occurrence: US)
  Receive Date: 20140723
  Receipt Date: 20150220
  Transmission Date: 20150720
  Serious: Yes (Life-Threatening, Hospitalization, Other)
  Sender: FDA-Public Use
  Company Number: US-JNJFOC-20140607546

PATIENT
  Age: 58 Year
  Sex: Female
  Weight: 108.9 kg

DRUGS (48)
  1. DURAGESIC [Suspect]
     Active Substance: FENTANYL
     Indication: PRODUCT USED FOR UNKNOWN INDICATION
     Dosage: 200 UNSPECIFIED UNITS ONCE EVERY 72 HOURS
     Route: 065
  2. MORPHINE SULFATE. [Suspect]
     Active Substance: MORPHINE SULFATE
     Indication: PRODUCT USED FOR UNKNOWN INDICATION
     Route: 042
  3. CARVEDILOL. [Suspect]
     Active Substance: CARVEDILOL
     Indication: PRODUCT USED FOR UNKNOWN INDICATION
     Route: 065
  4. DILAUDID [Suspect]
     Active Substance: HYDROMORPHONE HYDROCHLORIDE
     Indication: PRODUCT USED FOR UNKNOWN INDICATION
     Route: 048
  5. SOMA [Suspect]
     Active Substance: CARISOPRODOL
     Indication: PRODUCT USED FOR UNKNOWN INDICATION
     Route: 065
  6. VALSARTAN. [Suspect]
     Active Substance: VALSARTAN
     Indication: PRODUCT USED FOR UNKNOWN INDICATION
     Route: 065
  7. PHENERGAN [Suspect]
     Active Substance: PROMETHAZINE HYDROCHLORIDE
     Indication: PRODUCT USED FOR UNKNOWN INDICATION
     Route: 065
  8. HEPARIN FRACTION [Suspect]
     Active Substance: HEPARIN SODIUM
     Indication: PRODUCT USED FOR UNKNOWN INDICATION
     Route: 065
  9. CLONIDINE HYDROCHLORIDE. [Suspect]
     Active Substance: CLONIDINE HYDROCHLORIDE
     Indication: PRODUCT USED FOR UNKNOWN INDICATION
     Route: 048
     Dates: end: 20110928
  10. PARACETAMOL [Suspect]
     Active Substance: ACETAMINOPHEN
     Indication: PRODUCT USED FOR UNKNOWN INDICATION
     Route: 065
  11. HYDROXYZINE [Suspect]
     Active Substance: HYDROXYZINE\HYDROXYZINE HYDROCHLORIDE
     Indication: PRODUCT USED FOR UNKNOWN INDICATION
     Route: 065
  12. NORVASC [Suspect]
     Active Substance: AMLODIPINE BESYLATE
     Indication: PRODUCT USED FOR UNKNOWN INDICATION
     Route: 065
  13. OXYCODONE [Suspect]
     Active Substance: OXYCODONE
     Indication: PAIN
     Route: 065
  14. LIORESAL [Suspect]
     Active Substance: BACLOFEN
     Indication: PAIN
     Route: 037
  15. MORPHINE SULFATE. [Suspect]
     Active Substance: MORPHINE SULFATE
     Indication: PRODUCT USED FOR UNKNOWN INDICATION
     Route: 042
  16. CARISOPRODOL. [Suspect]
     Active Substance: CARISOPRODOL
     Indication: PRODUCT USED FOR UNKNOWN INDICATION
     Route: 065
  17. KLONOPIN [Suspect]
     Active Substance: CLONAZEPAM
     Indication: PRODUCT USED FOR UNKNOWN INDICATION
     Route: 065
  18. IBUPROFEN. [Suspect]
     Active Substance: IBUPROFEN
     Indication: PRODUCT USED FOR UNKNOWN INDICATION
     Route: 065
     Dates: end: 20110924
  19. PARACETAMOL [Suspect]
     Active Substance: ACETAMINOPHEN
     Route: 065
  20. NORVASC [Suspect]
     Active Substance: AMLODIPINE BESYLATE
     Indication: PRODUCT USED FOR UNKNOWN INDICATION
     Route: 065
  21. DILANTIN [Suspect]
     Active Substance: PHENYTOIN
     Indication: NEURALGIA
     Dosage: 100 OR 200 MG TID
     Route: 065
  22. COREG [Suspect]
     Active Substance: CARVEDILOL
     Indication: PRODUCT USED FOR UNKNOWN INDICATION
     Route: 048
     Dates: end: 20110928
  23. PHENERGAN [Suspect]
     Active Substance: PROMETHAZINE HYDROCHLORIDE
     Indication: PRODUCT USED FOR UNKNOWN INDICATION
     Route: 065
  24. MORPHINE SULPHATE [Suspect]
     Active Substance: MORPHINE SULFATE
     Indication: PRODUCT USED FOR UNKNOWN INDICATION
     Route: 065
  25. FENTANYL. [Suspect]
     Active Substance: FENTANYL
     Indication: PAIN
     Route: 062
  26. MORPHINE SULFATE. [Suspect]
     Active Substance: MORPHINE SULFATE
     Indication: PRODUCT USED FOR UNKNOWN INDICATION
     Route: 042
  27. NORVASC [Suspect]
     Active Substance: AMLODIPINE BESYLATE
     Indication: PRODUCT USED FOR UNKNOWN INDICATION
     Route: 065
  28. DIOVAN [Suspect]
     Active Substance: VALSARTAN
     Indication: PRODUCT USED FOR UNKNOWN INDICATION
     Route: 048
     Dates: end: 20110928
  29. ORPHENADRINE [Suspect]
     Active Substance: ORPHENADRINE
     Indication: PRODUCT USED FOR UNKNOWN INDICATION
     Route: 065
  30. FUROSEMIDE. [Suspect]
     Active Substance: FUROSEMIDE
     Indication: PRODUCT USED FOR UNKNOWN INDICATION
     Route: 065
  31. CLONIDINE HYDROCHLORIDE. [Suspect]
     Active Substance: CLONIDINE HYDROCHLORIDE
     Indication: PRODUCT USED FOR UNKNOWN INDICATION
     Route: 037
  32. ATARAX [Suspect]
     Active Substance: HYDROXYZINE\HYDROXYZINE HYDROCHLORIDE
     Indication: TREMOR
     Route: 065
  33. MORPHINE SULFATE. [Suspect]
     Active Substance: MORPHINE SULFATE
     Indication: PRODUCT USED FOR UNKNOWN INDICATION
     Route: 042
  34. MORPHINE SULFATE. [Suspect]
     Active Substance: MORPHINE SULFATE
     Indication: PRODUCT USED FOR UNKNOWN INDICATION
     Route: 042
  35. DILANTIN [Suspect]
     Active Substance: PHENYTOIN
     Indication: NEURALGIA
     Route: 065
  36. KEFLEX [Suspect]
     Active Substance: CEPHALEXIN
     Indication: PRODUCT USED FOR UNKNOWN INDICATION
     Route: 065
  37. SOMA [Suspect]
     Active Substance: CARISOPRODOL
     Indication: PRODUCT USED FOR UNKNOWN INDICATION
     Route: 065
  38. CLONAZEPAM. [Suspect]
     Active Substance: CLONAZEPAM
     Indication: PRODUCT USED FOR UNKNOWN INDICATION
     Route: 065
  39. METOCLOPRAMIDE HYDROCHLORIDE. [Suspect]
     Active Substance: METOCLOPRAMIDE HYDROCHLORIDE
     Indication: PRODUCT USED FOR UNKNOWN INDICATION
     Route: 042
  40. MORPHINE SULPHATE [Suspect]
     Active Substance: MORPHINE SULFATE
     Indication: PRODUCT USED FOR UNKNOWN INDICATION
     Route: 037
  41. CLONIDINE HYDROCHLORIDE. [Suspect]
     Active Substance: CLONIDINE HYDROCHLORIDE
     Indication: PRODUCT USED FOR UNKNOWN INDICATION
     Route: 048
  42. FENTANYL. [Suspect]
     Active Substance: FENTANYL
     Indication: PAIN
     Route: 062
  43. PANTOPRAZOLE [Suspect]
     Active Substance: PANTOPRAZOLE SODIUM
     Indication: PRODUCT USED FOR UNKNOWN INDICATION
     Route: 048
  44. MORPHINE SULFATE. [Suspect]
     Active Substance: MORPHINE SULFATE
     Indication: PRODUCT USED FOR UNKNOWN INDICATION
     Route: 042
  45. MORPHINE SULFATE. [Suspect]
     Active Substance: MORPHINE SULFATE
     Indication: PRODUCT USED FOR UNKNOWN INDICATION
     Route: 042
  46. ENOXAPARIN [Suspect]
     Active Substance: ENOXAPARIN
     Indication: PRODUCT USED FOR UNKNOWN INDICATION
     Route: 042
  47. PHENYTOIN. [Suspect]
     Active Substance: PHENYTOIN
     Indication: PRODUCT USED FOR UNKNOWN INDICATION
     Route: 065
  48. PHENERGAN [Suspect]
     Active Substance: PROMETHAZINE HYDROCHLORIDE
     Indication: PRODUCT USED FOR UNKNOWN INDICATION
     Dosage: EVERY 6 HOURS AS NEEDED
     Route: 054

REACTIONS (84)
  - Arthritis bacterial [Unknown]
  - Red blood cell sedimentation rate increased [Unknown]
  - Anxiety disorder [Unknown]
  - Myositis [Unknown]
  - Implant site abscess [Unknown]
  - Intervertebral disc degeneration [Unknown]
  - Blood potassium abnormal [Unknown]
  - Soft tissue infection [Not Recovered/Not Resolved]
  - Feeling hot [Unknown]
  - Heart rate increased [Unknown]
  - Haematocrit decreased [Unknown]
  - Blood glucose increased [Unknown]
  - Dehydration [Unknown]
  - Blood albumin decreased [Unknown]
  - C-reactive protein increased [Unknown]
  - Cough [Unknown]
  - Nuclear magnetic resonance imaging abnormal [Unknown]
  - Red blood cells urine positive [Unknown]
  - Urinary casts [Unknown]
  - Extradural abscess [Unknown]
  - Lumbar spinal stenosis [Unknown]
  - Hypovolaemia [Unknown]
  - Cellulitis [Unknown]
  - Implant site mass [Unknown]
  - Hyponatraemia [Unknown]
  - Purulent discharge [Unknown]
  - Dyspnoea [Unknown]
  - Vomiting [Unknown]
  - Neuralgia [Recovering/Resolving]
  - White blood cells urine positive [Recovered/Resolved]
  - Foreign body reaction [Unknown]
  - Staphylococcus test positive [Unknown]
  - Wound infection staphylococcal [Unknown]
  - Obesity [Unknown]
  - Seizure [Unknown]
  - Back pain [Recovering/Resolving]
  - Pain in extremity [Unknown]
  - Insomnia [Unknown]
  - Urinary tract infection [Unknown]
  - Blood magnesium decreased [Unknown]
  - Impaired gastric emptying [Unknown]
  - Paralysis [Unknown]
  - Allodynia [Unknown]
  - Implant site pain [Not Recovered/Not Resolved]
  - Skin infection [Recovered/Resolved]
  - Globulins increased [Unknown]
  - Blood calcium decreased [Unknown]
  - Feeling abnormal [Unknown]
  - Hypertensive encephalopathy [Unknown]
  - Hypertensive crisis [Unknown]
  - Haemoglobin decreased [Unknown]
  - Product use issue [Unknown]
  - Mean cell volume decreased [Unknown]
  - Drug ineffective [Unknown]
  - Electrocardiogram abnormal [Unknown]
  - Spinal osteoarthritis [Unknown]
  - Neutrophil count increased [Unknown]
  - Wound dehiscence [Unknown]
  - Influenza [Unknown]
  - Hyperpathia [Unknown]
  - Implant site discharge [Unknown]
  - Anaemia [Unknown]
  - Hypertension [Recovering/Resolving]
  - Meningitis [Recovering/Resolving]
  - Abasia [Unknown]
  - Dry mouth [Unknown]
  - Headache [Unknown]
  - Post procedural haemorrhage [Unknown]
  - Osteomyelitis [Unknown]
  - Contusion [Unknown]
  - Left ventricular hypertrophy [Unknown]
  - Implant site hypersensitivity [Unknown]
  - Tooth fracture [Unknown]
  - Pyrexia [Recovered/Resolved]
  - Paraesthesia [Unknown]
  - Respiratory rate increased [Unknown]
  - Throat irritation [Unknown]
  - Hypoaesthesia [Unknown]
  - Tremor [Unknown]
  - Muscle spasms [Unknown]
  - Muscular weakness [Unknown]
  - Drug ineffective [Recovering/Resolving]
  - Nausea [Recovering/Resolving]
  - Asthenia [Unknown]

NARRATIVE: CASE EVENT DATE: 20110928
